FAERS Safety Report 25825943 (Version 1)
Quarter: 2025Q3

REPORT INFORMATION
  Report Type: Spontaneous
  Country: US (occurrence: US)
  Receive Date: 20250919
  Receipt Date: 20250919
  Transmission Date: 20251021
  Serious: No
  Sender: DR REDDYS
  Company Number: US-DRL-USA-USA/2025/09/013816

PATIENT
  Age: 67 Year
  Sex: Male
  Weight: 121.56 kg

DRUGS (1)
  1. DOANS EXTRA STRENGTH [Suspect]
     Active Substance: MAGNESIUM SALICYLATE
     Indication: Back pain
     Dosage: THE CUMULATIVE DOSE WAS 1160MG
     Route: 048
     Dates: start: 20250901, end: 20250903

REACTIONS (2)
  - Nausea [Recovered/Resolved]
  - Constipation [Recovered/Resolved]

NARRATIVE: CASE EVENT DATE: 20250904
